FAERS Safety Report 5625208-9 (Version None)
Quarter: 2008Q1

REPORT INFORMATION
  Report Type: 
  Country: None (occurrence: None)
  Receive Date: 20080213
  Receipt Date: 20080130
  Transmission Date: 20080703
  Serious: Yes (Hospitalization)
  Sender: FDA-Public Use
  Company Number: ES-GENENTECH-253998

PATIENT
  Sex: Male
  Weight: 83 kg

DRUGS (9)
  1. BEVACIZUMAB [Suspect]
     Indication: COLORECTAL CANCER METASTATIC
     Dosage: 622 MG, Q3W
     Route: 042
     Dates: start: 20071108
  2. OXALIPLATIN [Suspect]
     Indication: COLORECTAL CANCER METASTATIC
     Dosage: 248 MG, Q3W
     Route: 042
     Dates: start: 20071108
  3. CAPECITABINE [Suspect]
     Indication: COLORECTAL CANCER METASTATIC
     Dosage: 2000 MG, Q3W
     Route: 048
     Dates: start: 20071108
  4. MOVALIS [Concomitant]
     Indication: DRUG USE FOR UNKNOWN INDICATION
  5. ADOLONTA [Concomitant]
     Indication: DRUG USE FOR UNKNOWN INDICATION
  6. DAONIL [Concomitant]
     Indication: DRUG USE FOR UNKNOWN INDICATION
  7. SPIRIVA [Concomitant]
     Indication: DRUG USE FOR UNKNOWN INDICATION
  8. FLUTICASONE PROPIONATE/SALMETEROL XINAFOATE [Concomitant]
     Indication: DRUG USE FOR UNKNOWN INDICATION
  9. OMEPRAZOLE [Concomitant]
     Indication: DRUG USE FOR UNKNOWN INDICATION

REACTIONS (1)
  - ATRIAL FLUTTER [None]
